FAERS Safety Report 6904995-3 (Version None)
Quarter: 2010Q3

REPORT INFORMATION
  Report Type: 
  Country: None (occurrence: None)
  Receive Date: 20100804
  Receipt Date: 20090823
  Transmission Date: 20110219
  Serious: No
  Sender: FDA-Public Use
  Company Number: US-PFIZER INC-2009234164

PATIENT
  Sex: Male
  Weight: 88.435 kg

DRUGS (1)
  1. LYRICA [Suspect]
     Indication: PAIN
     Dosage: UNK
     Dates: start: 20090404

REACTIONS (3)
  - ACNE [None]
  - PAIN [None]
  - WHITE BLOOD CELL COUNT INCREASED [None]
